FAERS Safety Report 15345293 (Version 1)
Quarter: 2018Q3

REPORT INFORMATION
  Report Type: Spontaneous
  Country: FR (occurrence: FR)
  Receive Date: 20180903
  Receipt Date: 20180903
  Transmission Date: 20181010
  Serious: Yes (Other)
  Sender: FDA-Public Use
  Company Number: FR-PFIZER INC-2018349538

PATIENT
  Age: 11 Year
  Sex: Female

DRUGS (4)
  1. PARACETAMOL [Suspect]
     Active Substance: ACETAMINOPHEN
     Indication: PAIN
     Route: 048
     Dates: start: 2011, end: 2011
  2. METRONIDAZOLE. [Suspect]
     Active Substance: METRONIDAZOLE
     Indication: WISDOM TEETH REMOVAL
     Route: 048
     Dates: start: 2011, end: 2011
  3. ADVIL [Suspect]
     Active Substance: IBUPROFEN
     Indication: PAIN
     Route: 048
     Dates: start: 2011, end: 2011
  4. SPIRAMYCINE [Suspect]
     Active Substance: SPIRAMYCIN
     Indication: WISDOM TEETH REMOVAL
     Route: 048
     Dates: start: 2011, end: 2011

REACTIONS (4)
  - Dysuria [Recovered/Resolved]
  - Fixed eruption [Recovered/Resolved]
  - Dermatitis bullous [Recovered/Resolved]
  - Vulval disorder [Recovered/Resolved]

NARRATIVE: CASE EVENT DATE: 2011
